FAERS Safety Report 7316599-1 (Version None)
Quarter: 2011Q1

REPORT INFORMATION
  Report Type: 
  Country: None (occurrence: None)
  Receive Date: 20110226
  Receipt Date: 20100716
  Transmission Date: 20110831
  Serious: No
  Sender: FDA-Public Use
  Company Number: US-ALLERGAN-1009297US

PATIENT
  Age: 50 Year
  Sex: Female

DRUGS (2)
  1. JUVEDERM [Suspect]
     Indication: PRODUCT USED FOR UNKNOWN INDICATION
  2. BOTOX COSMETIC [Suspect]
     Indication: SKIN WRINKLING
     Route: 030

REACTIONS (2)
  - RASH [None]
  - INJECTION SITE ERYTHEMA [None]
